FAERS Safety Report 6444644-4 (Version None)
Quarter: 2009Q4

REPORT INFORMATION
  Report Type: 
  Country: None (occurrence: None)
  Receive Date: 20091116
  Receipt Date: 20091116
  Transmission Date: 20100525
  Serious: No
  Sender: FDA-Public Use
  Company Number: None

PATIENT
  Age: 94 Year
  Sex: Male
  Weight: 58.514 kg

DRUGS (2)
  1. BENADRYL [Suspect]
  2. INFED [Suspect]

REACTIONS (5)
  - BLOOD PRESSURE DECREASED [None]
  - DEPRESSED LEVEL OF CONSCIOUSNESS [None]
  - ERYTHEMA [None]
  - FLUSHING [None]
  - UNRESPONSIVE TO STIMULI [None]
